FAERS Safety Report 17227486 (Version 1)
Quarter: 2020Q1

REPORT INFORMATION
  Report Type: Spontaneous
  Country: DE (occurrence: DE)
  Receive Date: 20200103
  Receipt Date: 20200103
  Transmission Date: 20200409
  Serious: Yes (Hospitalization, Other)
  Sender: FDA-Public Use
  Company Number: DE-009507513-1912DEU012480

PATIENT
  Age: 32 Year
  Sex: Female

DRUGS (3)
  1. PERGOVERIS [Suspect]
     Active Substance: FOLLITROPIN\LUTROPIN ALFA
     Indication: ASSISTED REPRODUCTIVE TECHNOLOGY
     Dosage: UNK
  2. ORGALUTRAN [Suspect]
     Active Substance: GANIRELIX ACETATE
     Indication: ASSISTED REPRODUCTIVE TECHNOLOGY
     Dosage: UNK
  3. OVITRELLE [Suspect]
     Active Substance: CHORIOGONADOTROPIN ALFA
     Indication: ASSISTED REPRODUCTIVE TECHNOLOGY
     Dosage: UNK

REACTIONS (2)
  - Ovarian hyperstimulation syndrome [Recovered/Resolved]
  - Adnexal torsion [Recovered/Resolved with Sequelae]
